FAERS Safety Report 7629891-8 (Version None)
Quarter: 2011Q3

REPORT INFORMATION
  Report Type: 
  Country: None (occurrence: None)
  Receive Date: 20110722
  Receipt Date: 20110712
  Transmission Date: 20111222
  Serious: Yes (Other)
  Sender: FDA-Public Use
  Company Number: IT-JNJFOC-20110704778

PATIENT
  Age: 68 Year
  Sex: Male

DRUGS (9)
  1. INFLIXIMAB, RECOMBINANT [Suspect]
     Indication: PSORIASIS
     Dosage: DURATION 42 MONTHS (ALSO REPORTED AS 42 WEEKS)
     Route: 042
  2. ASPIRIN [Concomitant]
  3. INFLIXIMAB, RECOMBINANT [Suspect]
     Indication: PSORIATIC ARTHROPATHY
     Dosage: DURATION 42 MONTHS (ALSO REPORTED AS 42 WEEKS)
     Route: 042
  4. METHOTREXATE [Concomitant]
     Indication: PSORIATIC ARTHROPATHY
     Dosage: 6 MONTHS
     Route: 058
     Dates: start: 20091101
  5. BISOPROLOL [Concomitant]
  6. METHOTREXATE [Concomitant]
     Indication: PSORIASIS
     Dosage: 6 MONTHS
     Route: 058
     Dates: start: 20091101
  7. FLECAINIDE ACETATE [Concomitant]
  8. IMIQUIMOD [Suspect]
     Indication: BASAL CELL CARCINOMA
     Dosage: EVERY DAY, FIVE TIMES A WEEK FOR SIX WEEKS
     Route: 061
  9. LANSOPRAZOLE [Concomitant]

REACTIONS (4)
  - APPLICATION SITE SCAR [None]
  - ARTHROPATHY [None]
  - APPLICATION SITE REACTION [None]
  - BASAL CELL CARCINOMA [None]
